FAERS Safety Report 16010385 (Version 2)
Quarter: 2019Q1

REPORT INFORMATION
  Report Type: Spontaneous
  Country: IT (occurrence: IT)
  Receive Date: 20190225
  Receipt Date: 20190305
  Transmission Date: 20190418
  Serious: Yes (Other)
  Sender: FDA-Public Use
  Company Number: IT-TEVA-2019-IT-1013312

PATIENT
  Age: 40 Year
  Sex: Female

DRUGS (14)
  1. CETRORELIX ACETATE [Suspect]
     Active Substance: CETRORELIX ACETATE
     Indication: HYPOTHALAMO-PITUITARY DISORDER
     Dosage: 0.25 MILLIGRAM (FOR 8 DAYS, RECEIVED DURING IN VITRO FERTILIZATION)
     Route: 065
  2. ETHINYLESTRADIOL [Suspect]
     Active Substance: ETHINYL ESTRADIOL
     Indication: HORMONE THERAPY
  3. PUREGON (FOLLITROPIN BETA) [Suspect]
     Active Substance: FOLLITROPIN
     Indication: HORMONE THERAPY
     Dosage: 300 INTERNATIONAL UNIT, UNKNOWN (SCHEDULED TO BE ADMINISTERED FOR 8 DAYS, RECEIVED DURING IN VITRO F
     Route: 030
     Dates: start: 20120517, end: 20120524
  4. CETRORELIX ACETATE [Suspect]
     Active Substance: CETRORELIX ACETATE
     Indication: IN VITRO FERTILISATION
  5. GESTODENE [Suspect]
     Active Substance: GESTODENE
     Indication: HORMONE THERAPY
  6. ESTRADIOL. [Interacting]
     Active Substance: ESTRADIOL
     Indication: ASSISTED REPRODUCTIVE TECHNOLOGY
     Route: 065
  7. GESTODENE [Suspect]
     Active Substance: GESTODENE
     Indication: IN VITRO FERTILISATION
     Dosage: 0.03 MILLIGRAM (SCHEDULED TO BE ADMINISTERED FOR 28 DAYS, RECEIVED DURING IN VITRO FERTILIZATION
     Route: 065
  8. LEVETIRACETAM. [Suspect]
     Active Substance: LEVETIRACETAM
     Indication: GENERALISED TONIC-CLONIC SEIZURE
     Route: 048
  9. PUREGON (FOLLITROPIN BETA) [Suspect]
     Active Substance: FOLLITROPIN
     Indication: HYPOTHALAMO-PITUITARY DISORDER
     Route: 065
  10. PUREGON (FOLLITROPIN BETA) [Suspect]
     Active Substance: FOLLITROPIN
     Indication: IN VITRO FERTILISATION
  11. CETRORELIX ACETATE [Suspect]
     Active Substance: CETRORELIX ACETATE
     Indication: HORMONE THERAPY
  12. ETHINYLESTRADIOL [Suspect]
     Active Substance: ETHINYL ESTRADIOL
     Indication: IN VITRO FERTILISATION
     Dosage: 0.075 MILLIGRAM (SCHEDULED TO BE ADMINISTERED FOR 28 DAYS, RECEIVED DURING IN VITRO FERTILIZATION)
     Route: 065
  13. KEPPRA [Suspect]
     Active Substance: LEVETIRACETAM
     Indication: EPILEPSY
     Dosage: 3000 MILLIGRAM DAILY; 1000 MILLIGRAM, TID (3 IN 1D)
     Route: 048
     Dates: start: 20110418
  14. CLOBAZAM. [Concomitant]
     Active Substance: CLOBAZAM
     Indication: EPILEPSY
     Dosage: 20 MILLIGRAM DAILY; 10 MG, BID
     Route: 065

REACTIONS (7)
  - Drug level decreased [Unknown]
  - Drug interaction [None]
  - Disease recurrence [None]
  - Drug interaction [Unknown]
  - Drug ineffective [Recovered/Resolved]
  - Generalised tonic-clonic seizure [Recovered/Resolved]
  - Condition aggravated [Recovered/Resolved]
